FAERS Safety Report 9417652 (Version 2)
Quarter: 2013Q4

REPORT INFORMATION
  Report Type: Spontaneous
  Country: GB (occurrence: GB)
  Receive Date: 20130724
  Receipt Date: 20131104
  Transmission Date: 20140711
  Serious: Yes (Death)
  Sender: FDA-Public Use
  Company Number: GB-PFIZER INC-2013211429

PATIENT
  Age: 52 Year
  Sex: Female
  Weight: 154 kg

DRUGS (4)
  1. NORETHISTERONE [Suspect]
     Indication: MENORRHAGIA
     Dosage: 10 MG, 3X/DAY
     Route: 048
     Dates: start: 20121127, end: 20130121
  2. PROVERA [Suspect]
     Indication: MENORRHAGIA
     Dosage: 10 MG, 3X/DAY
     Route: 048
     Dates: start: 20130121
  3. FLUCLOXACILLIN SODIUM [Concomitant]
     Dosage: UNK
  4. FERROUS FUMARATE [Concomitant]
     Dosage: UNK

REACTIONS (1)
  - Pulmonary embolism [Fatal]
